FAERS Safety Report 18423537 (Version 1)
Quarter: 2020Q4

REPORT INFORMATION
  Report Type: Spontaneous
  Country: TW (occurrence: TW)
  Receive Date: 20201023
  Receipt Date: 20201023
  Transmission Date: 20210114
  Serious: Yes (Hospitalization)
  Sender: FDA-Public Use
  Company Number: TW-BIOMARINAP-TW-2020-132679

PATIENT
  Age: 22 Year
  Sex: Male

DRUGS (1)
  1. KUVAN [Suspect]
     Active Substance: SAPROPTERIN DIHYDROCHLORIDE
     Indication: PHENYLKETONURIA
     Dosage: UNK, QD
     Route: 048
     Dates: start: 20120829

REACTIONS (1)
  - Joint dislocation [Recovering/Resolving]

NARRATIVE: CASE EVENT DATE: 20201008
